FAERS Safety Report 6699034-6 (Version None)
Quarter: 2010Q2

REPORT INFORMATION
  Report Type: 
  Country: None (occurrence: None)
  Receive Date: 20100427
  Receipt Date: 20100421
  Transmission Date: 20101027
  Serious: Yes (Hospitalization)
  Sender: FDA-Public Use
  Company Number: US-BRISTOL-MYERS SQUIBB COMPANY-15074834

PATIENT
  Age: 44 Year
  Sex: Male
  Weight: 132 kg

DRUGS (17)
  1. CISPLATIN [Suspect]
     Indication: OROPHARYNGEAL CANCER STAGE UNSPECIFIED
     Dosage: ROUTE: OROPHARYNGEAL
  2. RADIATION THERAPY [Suspect]
     Indication: OROPHARYNGEAL CANCER STAGE UNSPECIFIED
     Dosage: ROUTE: OROPHARYNGEAL
  3. PAXIL [Concomitant]
     Dates: start: 20080401
  4. LISINOPRIL [Concomitant]
     Dates: start: 20090801
  5. WELLBUTRIN [Concomitant]
     Dates: start: 20080401
  6. KLONOPIN [Concomitant]
     Dates: start: 20080401
  7. PRILOSEC [Concomitant]
     Dates: start: 20090401
  8. PHENERGAN [Concomitant]
     Dates: start: 20091020
  9. REGLAN [Concomitant]
     Dates: start: 20091026
  10. ATIVAN [Concomitant]
     Dates: start: 20091026
  11. SENOKOT [Concomitant]
     Dates: start: 20091023
  12. DIFLUCAN [Concomitant]
     Dates: start: 20091029
  13. ROXANOL [Concomitant]
     Dates: start: 20091102
  14. FENTANYL [Concomitant]
     Dates: start: 20091109
  15. VOLTAREN [Concomitant]
     Dates: start: 20091108
  16. LIDOCAINE [Concomitant]
     Dates: start: 20091109
  17. OXYCODONE HCL AND ACETAMINOPHEN [Concomitant]
     Dates: start: 20091019

REACTIONS (6)
  - DECREASED APPETITE [None]
  - DEHYDRATION [None]
  - DYSGEUSIA [None]
  - DYSPHAGIA [None]
  - MUCOSAL INFLAMMATION [None]
  - PAIN [None]
